FAERS Safety Report 15249771 (Version 1)
Quarter: 2018Q3

REPORT INFORMATION
  Report Type: Report from Study
  Country: US (occurrence: US)
  Receive Date: 20180807
  Receipt Date: 20180807
  Transmission Date: 20181010
  Serious: Yes (Death, Other)
  Sender: FDA-Public Use
  Company Number: US-GILEAD-2018-0354079

PATIENT
  Age: 88 Year
  Sex: Female

DRUGS (11)
  1. AMBRISENTAN [Suspect]
     Active Substance: AMBRISENTAN
     Indication: PULMONARY ARTERIAL HYPERTENSION
     Dosage: 5 MG, QD
     Route: 065
     Dates: start: 20180511
  2. SEROQUEL [Concomitant]
     Active Substance: QUETIAPINE FUMARATE
  3. RESTASIS [Concomitant]
     Active Substance: CYCLOSPORINE
  4. POTASSIUM [Concomitant]
     Active Substance: POTASSIUM
  5. ADCIRCA [Concomitant]
     Active Substance: TADALAFIL
  6. FUROSEMIDE. [Concomitant]
     Active Substance: FUROSEMIDE
  7. METOPROLOL. [Concomitant]
     Active Substance: METOPROLOL
  8. ASMANEX HFA [Concomitant]
     Active Substance: MOMETASONE FUROATE
  9. ATROVENT [Concomitant]
     Active Substance: IPRATROPIUM BROMIDE
  10. DIGOXIN. [Concomitant]
     Active Substance: DIGOXIN
  11. ELIQUIS [Concomitant]
     Active Substance: APIXABAN

REACTIONS (1)
  - Death [Fatal]

NARRATIVE: CASE EVENT DATE: 20180727
